FAERS Safety Report 14068301 (Version 1)
Quarter: 2017Q4

REPORT INFORMATION
  Report Type: Spontaneous
  Country: US (occurrence: US)
  Receive Date: 20171010
  Receipt Date: 20171010
  Transmission Date: 20180321
  Serious: Yes (Hospitalization, Other)
  Sender: FDA-Public Use
  Company Number: US-AMGEN-USASP2017150249

PATIENT
  Age: 69 Year
  Sex: Female

DRUGS (10)
  1. BEVACIZUMAB. [Suspect]
     Active Substance: BEVACIZUMAB
     Indication: CHRONIC LYMPHOCYTIC LEUKAEMIA
     Dosage: 15 MG/KG, 30-90 MINUTES ON DAY 1 OF COURSES 1-5 AND ON DAY 1, 22 AND 43 OF COURSE 6 (8 DOSES)
     Route: 042
     Dates: start: 20110223
  2. BEVACIZUMAB. [Suspect]
     Active Substance: BEVACIZUMAB
     Dosage: 15 MG/KG, UNK
     Route: 042
     Dates: start: 20110518
  3. PENTOSTATIN. [Suspect]
     Active Substance: PENTOSTATIN
     Indication: CHRONIC LYMPHOCYTIC LEUKAEMIA
     Dosage: 2 MG/M2, CYCLICAL OVER 30 MINUTES (6 CYCLES)
     Route: 042
     Dates: start: 20110223
  4. PEGFILGRASTIM [Suspect]
     Active Substance: PEGFILGRASTIM
     Dosage: 6 MG, CYCLICAL
     Route: 058
     Dates: start: 20110518
  5. RITUXIMAB. [Suspect]
     Active Substance: RITUXIMAB
     Dosage: 375 MG/M2, Q3WK
     Route: 042
     Dates: start: 20110518
  6. CYCLOPHOSPHAMIDE. [Suspect]
     Active Substance: CYCLOPHOSPHAMIDE
     Indication: CHRONIC LYMPHOCYTIC LEUKAEMIA
     Dosage: 600 MG/M2, CYCLICAL (OVER 30 MINUTES (6 CYCLES))
     Route: 042
     Dates: start: 20110223
  7. PEGFILGRASTIM [Suspect]
     Active Substance: PEGFILGRASTIM
     Indication: CHRONIC LYMPHOCYTIC LEUKAEMIA
     Dosage: 6 MG, CYCLICAL
     Route: 058
     Dates: start: 20110223
  8. RITUXIMAB. [Suspect]
     Active Substance: RITUXIMAB
     Indication: CHRONIC LYMPHOCYTIC LEUKAEMIA
     Dosage: 375 MG/M2, Q3WK (6 CYCLES)
     Route: 042
     Dates: start: 20110223
  9. CYCLOPHOSPHAMIDE. [Suspect]
     Active Substance: CYCLOPHOSPHAMIDE
     Dosage: 600 MG/M2, CYCLICAL
     Route: 042
     Dates: start: 20110518
  10. PENTOSTATIN. [Suspect]
     Active Substance: PENTOSTATIN
     Dosage: 2 MG/M2, Q3WK
     Route: 042
     Dates: start: 20110518

REACTIONS (6)
  - Neutropenia [Unknown]
  - Left ventricular dysfunction [Unknown]
  - Neutrophil count decreased [Unknown]
  - Anaemia [Unknown]
  - Blood disorder [Unknown]
  - Leukopenia [Unknown]

NARRATIVE: CASE EVENT DATE: 20110724
